FAERS Safety Report 10371990 (Version 1)
Quarter: 2014Q3

REPORT INFORMATION
  Report Type: Spontaneous
  Country: BR (occurrence: BR)
  Receive Date: 20140808
  Receipt Date: 20140808
  Transmission Date: 20150326
  Serious: Yes (Other)
  Sender: FDA-Public Use
  Company Number: BR-JNJFOC-20140801380

PATIENT
  Sex: Male

DRUGS (3)
  1. KETOCONAZOLE. [Suspect]
     Active Substance: KETOCONAZOLE
     Indication: PRODUCT USED FOR UNKNOWN INDICATION
     Route: 065
     Dates: start: 20140206, end: 20140318
  2. FLUTAMIDE. [Concomitant]
     Active Substance: FLUTAMIDE
     Route: 065
     Dates: start: 20131129, end: 20140318
  3. FLUTAMIDE. [Concomitant]
     Active Substance: FLUTAMIDE
     Route: 065
     Dates: start: 20131022

REACTIONS (4)
  - Thrombosis [Unknown]
  - Malaise [Unknown]
  - Prostatic specific antigen increased [Unknown]
  - Drug ineffective [Unknown]

NARRATIVE: CASE EVENT DATE: 20140325
